FAERS Safety Report 9807762 (Version 2)
Quarter: 2014Q1

REPORT INFORMATION
  Report Type: Spontaneous
  Country: CA (occurrence: CA)
  Receive Date: 20140110
  Receipt Date: 20140110
  Transmission Date: 20141002
  Serious: Yes (Hospitalization, Other)
  Sender: FDA-Public Use
  Company Number: CA-JNJFOC-20110806103

PATIENT
  Age: 56 Year
  Sex: Male
  Weight: 81.65 kg

DRUGS (41)
  1. REMICADE [Suspect]
     Indication: PSORIATIC ARTHROPATHY
     Route: 042
     Dates: end: 20110627
  2. REMICADE [Suspect]
     Indication: PSORIATIC ARTHROPATHY
     Route: 042
     Dates: start: 20130201, end: 2013
  3. REMICADE [Suspect]
     Indication: PSORIATIC ARTHROPATHY
     Route: 042
     Dates: start: 201105
  4. REMICADE [Suspect]
     Indication: PSORIATIC ARTHROPATHY
     Route: 042
     Dates: start: 200710
  5. REMICADE [Suspect]
     Indication: PSORIATIC ARTHROPATHY
     Route: 042
     Dates: start: 201010
  6. REMICADE [Suspect]
     Indication: RHEUMATOID ARTHRITIS
     Route: 042
     Dates: start: 201105
  7. REMICADE [Suspect]
     Indication: RHEUMATOID ARTHRITIS
     Route: 042
     Dates: start: 20130201, end: 2013
  8. REMICADE [Suspect]
     Indication: RHEUMATOID ARTHRITIS
     Route: 042
     Dates: start: 201010
  9. REMICADE [Suspect]
     Indication: RHEUMATOID ARTHRITIS
     Route: 042
     Dates: start: 200710
  10. REMICADE [Suspect]
     Indication: RHEUMATOID ARTHRITIS
     Route: 042
     Dates: end: 20110627
  11. METHOTREXATE [Concomitant]
     Indication: ARTHRITIS
     Route: 058
     Dates: start: 20130113
  12. METHOTREXATE [Concomitant]
     Indication: ARTHRITIS
     Route: 058
     Dates: start: 2007
  13. CORTISONE [Concomitant]
     Indication: ARTHRITIS
     Route: 065
     Dates: start: 2007
  14. ALENDRONATE [Concomitant]
     Dosage: IN THE MORNING, HALF HOUR BEFORE FOOD OR MEDICATION WITH WATER
     Route: 065
  15. ZOPICLONE [Concomitant]
     Dosage: AT BED TIME IF NEEDED
     Route: 065
  16. ZOPICLONE [Concomitant]
     Route: 065
     Dates: start: 20130201
  17. RABEPRAZOLE SODIUM [Concomitant]
     Dosage: MORNING AND EVENING IF NEEDED
     Route: 065
  18. RABEPRAZOLE SODIUM [Concomitant]
     Route: 065
     Dates: start: 20130201
  19. HYDROXYCHLOROQUINE [Concomitant]
     Dosage: MORNING AND EVENING IF NEEDED
     Route: 065
  20. HYDROXYCHLOROQUINE [Concomitant]
     Route: 065
     Dates: start: 20130201
  21. CALCIUM CARBONATE / VITAMIN D [Concomitant]
     Route: 065
     Dates: start: 20130201
  22. CALCIUM CARBONATE / VITAMIN D [Concomitant]
     Dosage: AT BREAKFAST AND SUPPER
     Route: 065
  23. CITALOPRAM [Concomitant]
     Route: 065
     Dates: start: 20130201
  24. CITALOPRAM [Concomitant]
     Route: 065
  25. CELEBREX [Concomitant]
     Route: 065
     Dates: start: 20130201
  26. CELEBREX [Concomitant]
     Dosage: AT BREAKFAST AND SUPPER
     Route: 065
  27. EURO FOLIC [Concomitant]
     Route: 065
     Dates: start: 20130201
  28. EURO FOLIC [Concomitant]
     Dosage: TEUSDAYS AND THURSDAYS
     Route: 065
  29. CYCLOBENZAPRINE [Concomitant]
     Route: 065
     Dates: start: 20130201
  30. CYCLOBENZAPRINE [Concomitant]
     Dosage: MORNING AND EVENING
     Route: 065
  31. OXYNEO [Concomitant]
     Route: 065
     Dates: start: 20130120
  32. OXYNEO [Concomitant]
     Dosage: MORNING AND EVENING
     Route: 065
  33. AMLODIPINE [Concomitant]
     Dosage: AT BREAKFAST
     Route: 065
  34. AMLODIPINE [Concomitant]
     Route: 065
     Dates: start: 20130120
  35. TRAMADOL ACET [Concomitant]
     Route: 065
     Dates: start: 20130201
  36. TRAMADOL ACET [Concomitant]
     Dosage: 37.5-325 MG, 2TABLETS 4 TIMES DAILY
     Route: 065
  37. PREDNISONE [Concomitant]
     Dosage: AT BREAKFAST
     Route: 065
  38. PREDNISONE [Concomitant]
     Route: 065
     Dates: start: 20130113
  39. SUPEUDOL [Concomitant]
     Indication: ARTHRITIS
     Route: 065
     Dates: start: 20130108
  40. SUPEUDOL [Concomitant]
     Indication: ARTHRITIS
     Dosage: IF NEEDED
     Route: 065
     Dates: start: 2007
  41. OXYCONTIN [Concomitant]
     Route: 065

REACTIONS (6)
  - Fall [Unknown]
  - Upper limb fracture [Unknown]
  - Wound infection bacterial [Recovered/Resolved]
  - Clostridium difficile infection [Unknown]
  - Acne [Unknown]
  - Laceration [Recovering/Resolving]
